FAERS Safety Report 10190262 (Version 2)
Quarter: 2014Q3

REPORT INFORMATION
  Report Type: Spontaneous
  Country: JP (occurrence: JP)
  Receive Date: 20140522
  Receipt Date: 20140730
  Transmission Date: 20150326
  Serious: Yes (Death, Other)
  Sender: FDA-Public Use
  Company Number: PHHY2014JP062298

PATIENT
  Age: 47 Year
  Sex: Female

DRUGS (6)
  1. NEORAL [Suspect]
     Active Substance: CYCLOSPORINE
     Indication: IMMUNOSUPPRESSION
  2. SIMULECT [Suspect]
     Active Substance: BASILIXIMAB
     Indication: IMMUNOSUPPRESSION
  3. ADRENAL CORTEX PREPARATIONS [Concomitant]
     Active Substance: UNSPECIFIED INGREDIENT
  4. PEGINTERFERON ALFA-2A [Suspect]
     Active Substance: PEGINTERFERON ALFA-2A
  5. RIBAVIRIN. [Suspect]
     Active Substance: RIBAVIRIN
  6. METHYLPREDNISOLONE [Suspect]
     Active Substance: METHYLPREDNISOLONE
     Indication: IMMUNOSUPPRESSION

REACTIONS (6)
  - Hepatitis cholestatic [Fatal]
  - Hepatic failure [Unknown]
  - Cytomegalovirus infection [Unknown]
  - Hepatitis [Fatal]
  - Transplant dysfunction [Unknown]
  - Pneumonitis [Unknown]

NARRATIVE: CASE EVENT DATE: 201209
